FAERS Safety Report 9350117 (Version 1)
Quarter: 2013Q2

REPORT INFORMATION
  Report Type: Spontaneous
  Country: US (occurrence: US)
  Receive Date: 20130616
  Receipt Date: 20130616
  Transmission Date: 20140414
  Serious: No
  Sender: FDA-Public Use
  Company Number: US-009507513-1306USA004611

PATIENT
  Sex: 0

DRUGS (1)
  1. DULERA [Suspect]
     Dosage: POTENCY: 5 UG, 200 UG

REACTIONS (2)
  - Product quality issue [Unknown]
  - Drug ineffective [Unknown]
